FAERS Safety Report 11292086 (Version 2)
Quarter: 2015Q3

REPORT INFORMATION
  Report Type: Report from Study
  Country: PL (occurrence: PL)
  Receive Date: 20150722
  Receipt Date: 20150824
  Transmission Date: 20151125
  Serious: Yes (Death, Hospitalization)
  Sender: FDA-Public Use
  Company Number: PL-JNJFOC-20150712027

PATIENT
  Age: 69 Year
  Sex: Male
  Weight: 82 kg

DRUGS (1)
  1. IBRUTYNIB [Suspect]
     Active Substance: IBRUTINIB
     Indication: CHRONIC LYMPHOCYTIC LEUKAEMIA
     Route: 048
     Dates: start: 20150526, end: 20150616

REACTIONS (3)
  - Febrile neutropenia [Fatal]
  - Acute kidney injury [Fatal]
  - Stomatitis [Unknown]

NARRATIVE: CASE EVENT DATE: 20150611
